FAERS Safety Report 9808272 (Version 1)
Quarter: 2014Q1

REPORT INFORMATION
  Report Type: Spontaneous
  Country: US (occurrence: US)
  Receive Date: 20140110
  Receipt Date: 20140110
  Transmission Date: 20141002
  Serious: No
  Sender: FDA-Public Use
  Company Number: US-BAYER-2014-004479

PATIENT
  Sex: Male

DRUGS (1)
  1. LEVITRA [Suspect]
     Dosage: 10 MG, UNK
     Route: 048

REACTIONS (2)
  - Erythema [None]
  - Drug ineffective [None]
